FAERS Safety Report 8032156-6 (Version None)
Quarter: 2012Q1

REPORT INFORMATION
  Report Type: 
  Country: None (occurrence: None)
  Receive Date: 20120109
  Receipt Date: 20120106
  Transmission Date: 20120608
  Serious: Yes (Other)
  Sender: FDA-Public Use
  Company Number: GB-ROCHE-1028478

PATIENT
  Sex: Male

DRUGS (7)
  1. METHOTREXATE [Concomitant]
  2. PREDNISOLONE [Concomitant]
  3. FOLIC ACID [Concomitant]
  4. RANITIDINE [Concomitant]
  5. ACTEMRA [Suspect]
     Indication: RHEUMATOID ARTHRITIS
     Dates: start: 20110706
  6. CELECOXIB [Concomitant]
  7. CALCICHEW D3 FORTE [Concomitant]

REACTIONS (2)
  - DEPRESSION [None]
  - MEMORY IMPAIRMENT [None]
